FAERS Safety Report 21696765 (Version 8)
Quarter: 2023Q1

REPORT INFORMATION
  Report Type: Spontaneous
  Country: CA (occurrence: CA)
  Receive Date: 20221207
  Receipt Date: 20230317
  Transmission Date: 20230418
  Serious: Yes (Other)
  Sender: FDA-Public Use
  Company Number: CA-CELLTRION INC.-2022CA004296

PATIENT

DRUGS (6)
  1. INFLECTRA [Suspect]
     Active Substance: INFLIXIMAB-DYYB
     Indication: Colitis ulcerative
     Dosage: 600 MG, EVERY 0 , 2, 6 THEN EVERY 6 WEEKS
     Route: 042
     Dates: start: 20220323
  2. INFLECTRA [Suspect]
     Active Substance: INFLIXIMAB-DYYB
     Dosage: 600 MG, EVERY 0 , 2, 6 THEN EVERY 6 WEEKS
     Route: 042
     Dates: start: 20221019
  3. INFLECTRA [Suspect]
     Active Substance: INFLIXIMAB-DYYB
     Dosage: 600 MG, EVERY 0 , 2, 6 THEN EVERY 6 WEEKS
     Route: 042
     Dates: start: 20221213
  4. INFLECTRA [Suspect]
     Active Substance: INFLIXIMAB-DYYB
     Dosage: 600 MG, EVERY 0 , 2, 6 THEN EVERY 6 WEEKS
     Route: 042
     Dates: start: 20221213
  5. INFLECTRA [Suspect]
     Active Substance: INFLIXIMAB-DYYB
     Dosage: DOSE 600 MG (RECEIVED 4.44 MG/KG , 5 WEEKS AND 6 DAYS)
     Route: 042
     Dates: start: 20230123
  6. INFLECTRA [Suspect]
     Active Substance: INFLIXIMAB-DYYB
     Dosage: 600 MG, EVERY 6 WEEKS
     Route: 042
     Dates: start: 20230307

REACTIONS (20)
  - Sinusitis bacterial [Recovering/Resolving]
  - Cough [Not Recovered/Not Resolved]
  - Pyrexia [Recovered/Resolved]
  - Nasal congestion [Not Recovered/Not Resolved]
  - Vaginal infection [Unknown]
  - Infection [Unknown]
  - Abdominal pain upper [Unknown]
  - Back pain [Not Recovered/Not Resolved]
  - Muscle spasms [Not Recovered/Not Resolved]
  - Rhinorrhoea [Not Recovered/Not Resolved]
  - Influenza [Recovering/Resolving]
  - Rash [Not Recovered/Not Resolved]
  - Pain [Unknown]
  - Lymphadenopathy [Unknown]
  - Skin burning sensation [Unknown]
  - Off label use [Unknown]
  - Off label use [Unknown]
  - Off label use [Unknown]
  - Intentional product use issue [Unknown]
  - Inappropriate schedule of product administration [Unknown]

NARRATIVE: CASE EVENT DATE: 20220101
